FAERS Safety Report 19270465 (Version 3)
Quarter: 2021Q2

REPORT INFORMATION
  Report Type: Report from Study
  Country: BR (occurrence: BR)
  Receive Date: 20210518
  Receipt Date: 20210622
  Transmission Date: 20210717
  Serious: Yes (Other)
  Sender: FDA-Public Use
  Company Number: BR-TAKEDA-BR202012863

PATIENT
  Age: 23 Year
  Sex: Male
  Weight: 70 kg

DRUGS (4)
  1. IDURSULFASE [Suspect]
     Active Substance: IDURSULFASE
     Dosage: 5 DOSAGE FORM, 1/WEEK
     Route: 042
     Dates: start: 2014
  2. IDURSULFASE [Suspect]
     Active Substance: IDURSULFASE
     Dosage: UNK
     Route: 065
  3. IDURSULFASE [Suspect]
     Active Substance: IDURSULFASE
     Indication: MUCOPOLYSACCHARIDOSIS II
     Dosage: 5 DOSAGE FORM, 1/WEEK
     Route: 065
     Dates: start: 201402
  4. IDURSULFASE [Suspect]
     Active Substance: IDURSULFASE
     Dosage: 5 VIALS
     Route: 065
     Dates: start: 20200406

REACTIONS (8)
  - Cholelithiasis [Unknown]
  - Pain [Recovering/Resolving]
  - Headache [Recovering/Resolving]
  - Off label use [Unknown]
  - Weight decreased [Unknown]
  - Product dose omission issue [Recovered/Resolved]
  - Weight increased [Unknown]
  - Product availability issue [Recovered/Resolved]

NARRATIVE: CASE EVENT DATE: 2019
